FAERS Safety Report 4298469-9 (Version None)
Quarter: 2004Q1

REPORT INFORMATION
  Report Type: 
  Country: None (occurrence: None)
  Receive Date: 20040218
  Receipt Date: 20030912
  Transmission Date: 20041129
  Serious: Yes (Other)
  Sender: FDA-Public Use
  Company Number: US-BRISTOL-MYERS SQUIBB COMPANY-12385381

PATIENT

DRUGS (7)
  1. STADOL [Suspect]
     Route: 045
  2. CARISOPRODOL [Concomitant]
  3. PROMETHAZINE [Concomitant]
  4. METHYLPREDNISOLONE [Concomitant]
  5. IMITREX [Concomitant]
  6. SKELAXIN [Concomitant]
  7. DOXEPIN HCL [Concomitant]

REACTIONS (1)
  - DEPENDENCE [None]
